FAERS Safety Report 17108056 (Version 3)
Quarter: 2019Q4

REPORT INFORMATION
  Report Type: Spontaneous
  Country: PL (occurrence: PL)
  Receive Date: 20191203
  Receipt Date: 20191212
  Transmission Date: 20200122
  Serious: No
  Sender: FDA-Public Use
  Company Number: PL-PFIZER INC-2019513154

PATIENT
  Age: 55 Year
  Sex: Female

DRUGS (5)
  1. SEVREDOL [Suspect]
     Active Substance: MORPHINE
     Dosage: 20 MG, WRP
     Route: 065
  2. PREGABALIN. [Suspect]
     Active Substance: PREGABALIN
     Dosage: 75 MG, BID (TWICE A DAY)
     Route: 065
  3. OXYCODONE [Suspect]
     Active Substance: OXYCODONE
     Indication: NEURALGIA
     Dosage: 2X10MG
     Route: 065
  4. NALOXONE/OXYCODONE [Suspect]
     Active Substance: NALOXONE HYDROCHLORIDE\OXYCODONE HYDROCHLORIDE
     Dosage: 2X 20+10MG
     Route: 065
  5. OXYCODONE [Suspect]
     Active Substance: OXYCODONE
     Dosage: 10 MG, BID (TWICE A DAY)
     Route: 065

REACTIONS (1)
  - Drug ineffective [Unknown]
